FAERS Safety Report 8547790-4 (Version None)
Quarter: 2012Q3

REPORT INFORMATION
  Report Type: 
  Country: None (occurrence: None)
  Receive Date: 20120727
  Receipt Date: 20120227
  Transmission Date: 20120928
  Serious: Yes (Hospitalization)
  Sender: FDA-Public Use
  Company Number: US-ASTRAZENECA-2012SE03175

PATIENT
  Age: 43 Year
  Sex: Male
  Weight: 74.8 kg

DRUGS (5)
  1. SEROQUEL [Suspect]
     Route: 048
     Dates: start: 20120110
  2. SEROQUEL [Suspect]
     Indication: DEPRESSION
     Route: 048
  3. SEROQUEL [Suspect]
     Indication: SLEEP DISORDER
     Route: 048
  4. SEROQUEL [Suspect]
     Route: 048
     Dates: start: 20120110
  5. XANAX [Concomitant]

REACTIONS (6)
  - ADVERSE EVENT [None]
  - INSOMNIA [None]
  - DRUG INEFFECTIVE [None]
  - DEPRESSION [None]
  - OFF LABEL USE [None]
  - DRUG DOSE OMISSION [None]
